FAERS Safety Report 24852759 (Version 1)
Quarter: 2025Q1

REPORT INFORMATION
  Report Type: Spontaneous
  Country: CN (occurrence: CN)
  Receive Date: 20250116
  Receipt Date: 20250116
  Transmission Date: 20250409
  Serious: Yes (Other)
  Sender: MERCK
  Company Number: CN-009507513-2501CHN003391

PATIENT
  Age: 72 Year
  Sex: Female
  Weight: 53 kg

DRUGS (6)
  1. INVANZ [Suspect]
     Active Substance: ERTAPENEM SODIUM
     Indication: Soft tissue infection
     Dosage: 1G, QD
     Route: 041
     Dates: start: 20241209, end: 20250102
  2. VANCOMYCIN HYDROCHLORIDE [Suspect]
     Active Substance: VANCOMYCIN HYDROCHLORIDE
     Indication: Soft tissue infection
     Dosage: 100 10 THOUSAND U, BID
     Route: 041
     Dates: start: 20241208, end: 20250102
  3. LEVOFLOXACIN [Suspect]
     Active Substance: LEVOFLOXACIN
     Indication: Soft tissue infection
     Dosage: 0.5G, QD
     Route: 041
     Dates: start: 20250102, end: 20250108
  4. SODIUM CHLORIDE [Concomitant]
     Active Substance: SODIUM CHLORIDE
     Indication: Medication dilution
     Dosage: 250ML, BID
     Route: 041
     Dates: start: 20241208, end: 20250102
  5. SODIUM CHLORIDE [Concomitant]
     Active Substance: SODIUM CHLORIDE
     Dosage: 100ML, QD
     Route: 041
     Dates: start: 20241208, end: 20250102
  6. AMOXICILLIN\CLAVULANATE POTASSIUM [Concomitant]
     Active Substance: AMOXICILLIN\CLAVULANATE POTASSIUM
     Indication: Soft tissue infection

REACTIONS (2)
  - Drug eruption [Recovering/Resolving]
  - Incorrect product administration duration [Recovered/Resolved]

NARRATIVE: CASE EVENT DATE: 20241209
